FAERS Safety Report 23350308 (Version 1)
Quarter: 2023Q4

REPORT INFORMATION
  Report Type: Spontaneous
  Country: TH (occurrence: TH)
  Receive Date: 20231229
  Receipt Date: 20231229
  Transmission Date: 20240109
  Serious: Yes (Other)
  Sender: FDA-Public Use
  Company Number: TH-BAYER-2023A184717

PATIENT

DRUGS (1)
  1. FINERENONE [Suspect]
     Active Substance: FINERENONE

REACTIONS (1)
  - Blood pressure fluctuation [None]
